FAERS Safety Report 18742557 (Version 2)
Quarter: 2021Q1

REPORT INFORMATION
  Report Type: Spontaneous
  Country: PR (occurrence: PR)
  Receive Date: 20210114
  Receipt Date: 20210301
  Transmission Date: 20210419
  Serious: Yes (Hospitalization)
  Sender: FDA-Public Use
  Company Number: PR-TEVA-2021-PR-1867456

PATIENT
  Age: 59 Year
  Sex: Male

DRUGS (3)
  1. AMPHOTERICIN B LIPID COMPLEX [Suspect]
     Active Substance: AMPHOTERICIN B
     Indication: SINUSITIS ASPERGILLUS
     Route: 065
  2. IDARUBICIN [Suspect]
     Active Substance: IDARUBICIN
     Indication: ACUTE MYELOID LEUKAEMIA
     Route: 065
  3. CYTARABINE. [Suspect]
     Active Substance: CYTARABINE
     Indication: ACUTE MYELOID LEUKAEMIA
     Route: 065

REACTIONS (4)
  - Renal tubular acidosis [Recovering/Resolving]
  - Septic shock [Unknown]
  - Acute kidney injury [Recovering/Resolving]
  - Pancytopenia [Unknown]
